FAERS Safety Report 4873552-5 (Version None)
Quarter: 2006Q1

REPORT INFORMATION
  Report Type: 
  Country: None (occurrence: None)
  Receive Date: 20060105
  Receipt Date: 20050921
  Transmission Date: 20060701
  Serious: Yes (Hospitalization)
  Sender: FDA-Public Use
  Company Number: US-MERCK-0509USA03064

PATIENT
  Age: 50 Year
  Sex: Male
  Weight: 155 kg

DRUGS (10)
  1. VIOXX [Suspect]
     Indication: ARTHRITIS
     Route: 048
     Dates: start: 20001011, end: 20050101
  2. VIOXX [Suspect]
     Route: 048
     Dates: start: 20040124, end: 20041001
  3. VIOXX [Suspect]
     Indication: ARTHRALGIA
     Route: 048
     Dates: start: 20001011, end: 20050101
  4. VIOXX [Suspect]
     Route: 048
     Dates: start: 20040124, end: 20041001
  5. ORPHENADRINE [Concomitant]
     Route: 065
  6. DICLOFENAC [Concomitant]
     Route: 065
  7. VICODIN [Concomitant]
     Route: 065
  8. VIAGRA [Concomitant]
     Route: 065
  9. ALLOPURINOL [Concomitant]
     Route: 065
  10. NORFLEX [Concomitant]
     Route: 065

REACTIONS (10)
  - CHEST PAIN [None]
  - DEPRESSION [None]
  - DYSPNOEA [None]
  - HAEMATOCHEZIA [None]
  - HYPERLIPIDAEMIA [None]
  - LUMBAR SPINAL STENOSIS [None]
  - MUSCULOSKELETAL STIFFNESS [None]
  - OBESITY [None]
  - PYREXIA [None]
  - SLEEP APNOEA SYNDROME [None]
